APPROVED DRUG PRODUCT: ALOSETRON HYDROCHLORIDE
Active Ingredient: ALOSETRON HYDROCHLORIDE
Strength: EQ 1MG BASE
Dosage Form/Route: TABLET;ORAL
Application: A206113 | Product #002
Applicant: PH HEALTH LTD
Approved: Feb 23, 2018 | RLD: No | RS: No | Type: DISCN